FAERS Safety Report 7728326-4 (Version None)
Quarter: 2011Q3

REPORT INFORMATION
  Report Type: 
  Country: None (occurrence: None)
  Receive Date: 20110905
  Receipt Date: 20110830
  Transmission Date: 20111222
  Serious: Yes (Death, Other)
  Sender: FDA-Public Use
  Company Number: PHHY2011JP77691

PATIENT
  Sex: Male
  Weight: 70 kg

DRUGS (2)
  1. ALCENOL [Concomitant]
     Indication: HYPERTENSION
     Dosage: 25 MG, UNK
     Route: 048
     Dates: start: 20090625
  2. DIOVAN [Suspect]
     Dosage: 40 MG, QD
     Route: 048
     Dates: start: 20090529

REACTIONS (2)
  - BLOOD PRESSURE DIASTOLIC DECREASED [None]
  - PNEUMONIA [None]
